FAERS Safety Report 8998250 (Version 2)
Quarter: 2013Q2

REPORT INFORMATION
  Report Type: Spontaneous
  Country: US (occurrence: US)
  Receive Date: 20130104
  Receipt Date: 20130619
  Transmission Date: 20140414
  Serious: Yes (Other)
  Sender: FDA-Public Use
  Company Number: US-BAYER-2012-135719

PATIENT
  Age: 61 Year
  Sex: Male

DRUGS (9)
  1. BAYER GENUINE ASPIRIN ORIGINAL STRENGTH [Suspect]
     Dosage: UNK UNK, QD
  2. PLAVIX [Concomitant]
  3. COUMADIN [Concomitant]
  4. LISINOPRIL [Concomitant]
  5. COREG [Concomitant]
  6. AMIODARONE [Concomitant]
  7. AVELOX [Concomitant]
  8. ZOCOR [Concomitant]
  9. CHANTIX [Concomitant]
     Dosage: 1 MG, UNK

REACTIONS (1)
  - Myocardial infarction [None]
